FAERS Safety Report 8805117 (Version 2)
Quarter: 2012Q4

REPORT INFORMATION
  Report Type: 
  Country: US (occurrence: US)
  Receive Date: 20120924
  Receipt Date: 20121213
  Transmission Date: 20130627
  Serious: No
  Sender: FDA-Public Use
  Company Number: US-ALLERGAN-1210852US

PATIENT
  Age: 88 Year
  Sex: Female

DRUGS (6)
  1. LUMIGAN� 0.01% [Suspect]
     Indication: GLAUCOMA
     Dosage: 2 Gtt, qhs
     Route: 047
     Dates: start: 20120803, end: 20120806
  2. DIABETES MEDICATION [Concomitant]
     Indication: BLOOD SUGAR INCREASED
     Dosage: UNK
     Route: 048
     Dates: start: 2010
  3. COREG [Concomitant]
     Indication: ATRIAL FIBRILLATION
     Dosage: UNK
     Route: 048
     Dates: start: 2010
  4. DIGOXIN [Concomitant]
     Indication: ATRIAL FIBRILLATION
     Dosage: UNK
     Route: 048
     Dates: start: 2010
  5. SIMVASTATIN [Concomitant]
     Indication: HIGH CHOLESTEROL
     Dosage: UNK
     Route: 048
     Dates: start: 2010
  6. ASA [Concomitant]
     Indication: DRUG USE FOR UNKNOWN INDICATION
     Dosage: 325 mg, UNK
     Route: 048
     Dates: start: 2010

REACTIONS (1)
  - Vision blurred [Recovering/Resolving]
